APPROVED DRUG PRODUCT: ATENOLOL
Active Ingredient: ATENOLOL
Strength: 50MG
Dosage Form/Route: TABLET;ORAL
Application: A076900 | Product #002 | TE Code: AB
Applicant: ZYDUS PHARMACEUTICALS USA INC
Approved: Jan 28, 2005 | RLD: No | RS: No | Type: RX